FAERS Safety Report 15598776 (Version 2)
Quarter: 2019Q1

REPORT INFORMATION
  Report Type: Spontaneous
  Country: US (occurrence: US)
  Receive Date: 20181108
  Receipt Date: 20190314
  Transmission Date: 20190417
  Serious: Yes (Hospitalization, Other)
  Sender: FDA-Public Use
  Company Number: US-VIFOR (INTERNATIONAL) INC.-VIT-2018-10805

PATIENT
  Age: 58 Year
  Sex: Female

DRUGS (18)
  1. FUROSEMIDE. [Concomitant]
     Active Substance: FUROSEMIDE
  2. VITAMIN D [Concomitant]
     Active Substance: CHOLECALCIFEROL
  3. COENZYME Q10 [Concomitant]
     Active Substance: UBIDECARENONE
  4. DOCUSATE SODIUM. [Concomitant]
     Active Substance: DOCUSATE SODIUM
  5. NIFEDIPINE. [Concomitant]
     Active Substance: NIFEDIPINE
  6. CRESTOR [Concomitant]
     Active Substance: ROSUVASTATIN CALCIUM
  7. HUMALOG MIX50/50 [Concomitant]
     Active Substance: INSULIN LISPRO
  8. RENA-VITE [Concomitant]
     Active Substance: ASCORBIC ACID\BIOTIN\CALCIUM PANTOTHENATE\CYANOCOBALAMIN\FOLIC ACID\NIACINAMIDE\PYRIDOXINE HYDROCHLORIDE\RIBOFLAVIN\THIAMINE MONONITRATE
  9. LEVEMIR [Concomitant]
     Active Substance: INSULIN DETEMIR
  10. CARVEDILOL. [Concomitant]
     Active Substance: CARVEDILOL
  11. SENSIPAR [Concomitant]
     Active Substance: CINACALCET HYDROCHLORIDE
  12. CALCIUM ACETATE. [Concomitant]
     Active Substance: CALCIUM ACETATE
  13. LANTUS [Concomitant]
     Active Substance: INSULIN GLARGINE
  14. VELTASSA [Suspect]
     Active Substance: PATIROMER
     Indication: HYPERKALAEMIA
     Route: 048
     Dates: start: 20160708, end: 201810
  15. RENVELA [Concomitant]
     Active Substance: SEVELAMER CARBONATE
  16. ACETAMINOPHEN. [Concomitant]
     Active Substance: ACETAMINOPHEN
  17. SERTRALINE HCL [Concomitant]
     Active Substance: SERTRALINE HYDROCHLORIDE
  18. TRADJENTA [Concomitant]
     Active Substance: LINAGLIPTIN

REACTIONS (3)
  - Hepatitis [Unknown]
  - Dialysis [Unknown]
  - Blood glucose decreased [Unknown]

NARRATIVE: CASE EVENT DATE: 20181025
